FAERS Safety Report 18097185 (Version 1)
Quarter: 2020Q3

REPORT INFORMATION
  Report Type: Spontaneous
  Country: US (occurrence: US)
  Receive Date: 20200730
  Receipt Date: 20200730
  Transmission Date: 20201103
  Serious: Yes (Other)
  Sender: FDA-Public Use
  Company Number: US-US-PROVELL PHARMACEUTICALS LLC-9176745

PATIENT
  Age: 73 Year
  Sex: Female
  Weight: 76 kg

DRUGS (10)
  1. LOSARTAN. [Concomitant]
     Active Substance: LOSARTAN
     Indication: PRODUCT USED FOR UNKNOWN INDICATION
     Dosage: UNKOWN DOSE
  2. XANAX [Concomitant]
     Active Substance: ALPRAZOLAM
     Dosage: DOSE DOUBLED (UNKNOWN)
  3. EUTHYROX [Suspect]
     Active Substance: LEVOTHYROXINE SODIUM
     Dosage: DOSE INCREASED
     Dates: start: 20200716, end: 202007
  4. LOSARTAN. [Concomitant]
     Active Substance: LOSARTAN
     Dosage: DOUBLED THE DOSE (UNKNOWN)
  5. XANAX [Concomitant]
     Active Substance: ALPRAZOLAM
     Indication: PRODUCT USED FOR UNKNOWN INDICATION
     Dosage: UNKNOWN DOSE
  6. EUTHYROX [Suspect]
     Active Substance: LEVOTHYROXINE SODIUM
     Indication: POST PROCEDURAL HYPOTHYROIDISM
     Dosage: FOR 75 MCG: BATCH NO: 26651920 WITH EXPIRY DATE (JAN 2022)
     Dates: start: 202001, end: 2020
  7. EUTHYROX [Suspect]
     Active Substance: LEVOTHYROXINE SODIUM
     Dosage: DOSE DECREASED
     Dates: start: 202007, end: 202007
  8. EUTHYROX [Suspect]
     Active Substance: LEVOTHYROXINE SODIUM
     Dosage: AGAIN INCREASED
     Dates: start: 202007
  9. METOPROLOL. [Concomitant]
     Active Substance: METOPROLOL
     Indication: PRODUCT USED FOR UNKNOWN INDICATION
     Dosage: UNKNOWN DOSE
  10. METOPROLOL. [Concomitant]
     Active Substance: METOPROLOL
     Dosage: DOUBLED THE DOSE (UNKNOWN)

REACTIONS (6)
  - Dysphagia [Unknown]
  - Blood pressure increased [Not Recovered/Not Resolved]
  - Confusional state [Unknown]
  - Dyspepsia [Unknown]
  - Anxiety [Unknown]
  - Hypersensitivity [Not Recovered/Not Resolved]

NARRATIVE: CASE EVENT DATE: 2020
